FAERS Safety Report 4969575-8 (Version None)
Quarter: 2006Q1

REPORT INFORMATION
  Report Type: 
  Country: None (occurrence: None)
  Receive Date: 20060127
  Receipt Date: 20041228
  Transmission Date: 20060701
  Serious: Yes (Death)
  Sender: FDA-Public Use
  Company Number: 04-11-1615

PATIENT
  Age: 66 Year
  Sex: Male
  Weight: 104.3273 kg

DRUGS (7)
  1. CLOZAPINE [Suspect]
     Indication: PSYCHOTIC DISORDER
     Dosage: 300MG HS, ORAL
     Route: 048
     Dates: start: 20000801, end: 20040901
  2. CLOZAPINE [Suspect]
     Indication: SCHIZOPHRENIA
     Dosage: 300MG HS, ORAL
     Route: 048
     Dates: start: 20000801, end: 20040901
  3. LITHIUM (LITHIUM) [Concomitant]
  4. CARBATROL [Concomitant]
  5. LOVASTATIN [Concomitant]
  6. ATIVAN [Concomitant]
  7. MULTIVITAMIN [Concomitant]

REACTIONS (1)
  - UNEVALUABLE EVENT [None]
